FAERS Safety Report 17658318 (Version 2)
Quarter: 2020Q4

REPORT INFORMATION
  Report Type: Spontaneous
  Country: CA (occurrence: CA)
  Receive Date: 20200412
  Receipt Date: 20201105
  Transmission Date: 20210113
  Serious: Yes (Other)
  Sender: FDA-Public Use
  Company Number: CA-SAMSUNG BIOEPIS-SB-2020-11537

PATIENT
  Age: 27 Year
  Sex: Male
  Weight: 52 kg

DRUGS (4)
  1. INFLIXIMAB [Suspect]
     Active Substance: INFLIXIMAB
     Indication: PRODUCT USED FOR UNKNOWN INDICATION
     Route: 042
  2. METHOTREXATE. [Concomitant]
     Active Substance: METHOTREXATE
     Indication: PRODUCT USED FOR UNKNOWN INDICATION
  3. METHOTREXATE. [Concomitant]
     Active Substance: METHOTREXATE
     Indication: CROHN^S DISEASE
     Route: 048
  4. INFLIXIMAB [Suspect]
     Active Substance: INFLIXIMAB
     Indication: CROHN^S DISEASE
     Route: 042

REACTIONS (11)
  - Intentional product use issue [Unknown]
  - Faecal calprotectin increased [Unknown]
  - Heart rate irregular [Unknown]
  - Iron deficiency [Unknown]
  - Therapeutic response shortened [Unknown]
  - Asthenia [Unknown]
  - Drug level below therapeutic [Unknown]
  - Off label use [Unknown]
  - Feeling abnormal [Unknown]
  - Arthralgia [Unknown]
  - Condition aggravated [Unknown]
